FAERS Safety Report 9992677 (Version 1)
Quarter: 2014Q1

REPORT INFORMATION
  Report Type: Spontaneous
  Country: FR (occurrence: FR)
  Receive Date: 20140310
  Receipt Date: 20140310
  Transmission Date: 20141002
  Serious: Yes (Other)
  Sender: FDA-Public Use
  Company Number: FR-BAYER-2014-031221

PATIENT
  Age: 33 Year
  Sex: Male

DRUGS (11)
  1. IZILOX [Suspect]
     Indication: PULMONARY TUBERCULOSIS
     Dosage: 400 MG, QD
     Route: 048
     Dates: start: 20120911
  2. LYRICA [Suspect]
     Indication: NEUROPATHY PERIPHERAL
     Dosage: 150 MG, QD
     Route: 048
     Dates: start: 20130628, end: 20130724
  3. AMIKACINE [Suspect]
     Indication: PULMONARY TUBERCULOSIS
     Dosage: 550 MG, TIW
     Route: 042
     Dates: start: 20130531
  4. AMIKACINE [Suspect]
     Indication: PULMONARY TUBERCULOSIS
     Dosage: UNK
     Dates: start: 20120911, end: 20130411
  5. ZYVOXID [Suspect]
     Indication: PULMONARY TUBERCULOSIS
     Dosage: DAILY DOSE 600 MG
     Route: 048
     Dates: start: 20120911, end: 20130724
  6. PASER [Suspect]
     Indication: PULMONARY TUBERCULOSIS
     Dosage: 16 G, QD
     Route: 048
     Dates: start: 20120911
  7. TRILEPTAL [Concomitant]
  8. LAROXYL [Concomitant]
  9. LAMPRENE [Concomitant]
  10. AUGMENTIN [Concomitant]
     Dosage: UNK
     Dates: start: 20120911, end: 20130320
  11. TIENAM [Concomitant]
     Dosage: UNK
     Dates: start: 20120911, end: 20130320

REACTIONS (1)
  - Cholecystitis [Recovered/Resolved with Sequelae]
